FAERS Safety Report 18305211 (Version 1)
Quarter: 2020Q3

REPORT INFORMATION
  Report Type: Spontaneous
  Country: DK (occurrence: DK)
  Receive Date: 20200924
  Receipt Date: 20200924
  Transmission Date: 20201103
  Serious: Yes (Life-Threatening)
  Sender: FDA-Public Use
  Company Number: DK-TEVA-2020-DK-1830134

PATIENT
  Age: 57 Year
  Sex: Female
  Weight: 62 kg

DRUGS (1)
  1. GABARATIO [Suspect]
     Active Substance: GABAPENTIN
     Indication: NEURALGIA
     Dosage: STRENGTH: 300 MG, DOSAGE: STARTED WITH INCREASING OVER 3 DAYS
     Route: 048
     Dates: start: 20200814, end: 20200819

REACTIONS (1)
  - Presyncope [Recovered/Resolved]

NARRATIVE: CASE EVENT DATE: 20200819
